FAERS Safety Report 19389158 (Version 1)
Quarter: 2021Q2

REPORT INFORMATION
  Report Type: Spontaneous
  Country: US (occurrence: US)
  Receive Date: 20210608
  Receipt Date: 20210608
  Transmission Date: 20210717
  Serious: Yes (Life-Threatening, Hospitalization, Disabling)
  Sender: FDA-Public Use
  Company Number: None

PATIENT
  Age: 61 Year
  Sex: Female
  Weight: 58.97 kg

DRUGS (20)
  1. PROBIOTICS [Concomitant]
     Active Substance: PROBIOTICS NOS
  2. BAYER ASPIRIN [Concomitant]
     Active Substance: ASPIRIN
  3. C [Concomitant]
  4. ONDANSETRON [Concomitant]
     Active Substance: ONDANSETRON
  5. OMEGA 3 [Concomitant]
     Active Substance: OMEGA-3 FATTY ACIDS
  6. EFFEXOR [Suspect]
     Active Substance: VENLAFAXINE HYDROCHLORIDE
     Indication: DEPRESSION
     Dosage: ?          QUANTITY:1 DF DOSAGE FORM;?
     Route: 048
     Dates: start: 200612, end: 20140110
  7. PROMETHAZINE [Concomitant]
     Active Substance: PROMETHAZINE HYDROCHLORIDE
  8. DICYCLOMINE [Concomitant]
     Active Substance: DICYCLOMINE HYDROCHLORIDE
  9. HYDROCODONE BITARTRATE AND ACETAMINOPHEN [Concomitant]
     Active Substance: ACETAMINOPHEN\HYDROCODONE BITARTRATE
  10. MAGESIOM [Concomitant]
  11. CAL/D [Concomitant]
  12. NOVOLIN R [Concomitant]
     Active Substance: INSULIN HUMAN
  13. ATORVASTATIN [Concomitant]
     Active Substance: ATORVASTATIN
  14. ZINC. [Concomitant]
     Active Substance: ZINC
  15. INDOMETHACIN. [Concomitant]
     Active Substance: INDOMETHACIN
  16. EPINEPHRINE. [Concomitant]
     Active Substance: EPINEPHRINE
  17. METAXALONE. [Concomitant]
     Active Substance: METAXALONE
  18. LISINORIL [Concomitant]
     Active Substance: LISINOPRIL
  19. LEVOTHYROXINE. [Concomitant]
     Active Substance: LEVOTHYROXINE
  20. CHOLESTYRAMINE. [Concomitant]
     Active Substance: CHOLESTYRAMINE

REACTIONS (14)
  - Headache [None]
  - Rib fracture [None]
  - Diarrhoea [None]
  - Loss of libido [None]
  - Post procedural complication [None]
  - Fall [None]
  - Gastrointestinal scarring [None]
  - Nephrolithiasis [None]
  - Furuncle [None]
  - Sleep terror [None]
  - Abdominal pain upper [None]
  - Cyst [None]
  - Foot fracture [None]
  - Upper limb fracture [None]

NARRATIVE: CASE EVENT DATE: 20061212
